FAERS Safety Report 5818010-6 (Version None)
Quarter: 2008Q3

REPORT INFORMATION
  Report Type: 
  Country: None (occurrence: None)
  Receive Date: 20080722
  Receipt Date: 20080718
  Transmission Date: 20090109
  Serious: Yes (Hospitalization, Other)
  Sender: FDA-Public Use
  Company Number: US-BOEHRINGER INGELHEIM GMBH, GERMANY-2008-BP-11356BP

PATIENT
  Age: 48 Year
  Sex: Female

DRUGS (1)
  1. VIRAMUNE [Suspect]
     Indication: HIV INFECTION
     Route: 048

REACTIONS (5)
  - DYSGEUSIA [None]
  - HYPOXIC ENCEPHALOPATHY [None]
  - NAUSEA [None]
  - TACHYCARDIA [None]
  - VOMITING [None]
